FAERS Safety Report 11045111 (Version 1)
Quarter: 2015Q2

REPORT INFORMATION
  Report Type: Spontaneous
  Country: JP (occurrence: JP)
  Receive Date: 20150417
  Receipt Date: 20150417
  Transmission Date: 20150821
  Serious: Yes (Hospitalization)
  Sender: FDA-Public Use
  Company Number: PHJP2015JP000462

PATIENT
  Age: 64 Year
  Sex: Female
  Weight: 48 kg

DRUGS (8)
  1. TEGRETOL [Suspect]
     Active Substance: CARBAMAZEPINE
     Indication: BIPOLAR DISORDER
     Dosage: 100 MG, QD
     Route: 048
     Dates: start: 20141201, end: 20150113
  2. JZOLOFT [Concomitant]
     Active Substance: SERTRALINE HYDROCHLORIDE
     Dosage: 75 MG, QD
     Route: 048
     Dates: end: 20150113
  3. MEILAX [Concomitant]
     Active Substance: ETHYL LOFLAZEPATE
     Indication: BIPOLAR DISORDER
     Dosage: 1 MG, QD
     Route: 048
     Dates: start: 20141128, end: 20150113
  4. AMOBAN [Concomitant]
     Active Substance: ZOPICLONE
     Indication: INSOMNIA
     Dosage: 7.5 MG, QD
     Route: 048
  5. TEGRETOL [Suspect]
     Active Substance: CARBAMAZEPINE
     Indication: DEPRESSION
  6. JZOLOFT [Concomitant]
     Active Substance: SERTRALINE HYDROCHLORIDE
     Indication: BIPOLAR DISORDER
     Dosage: 25 MG, UNK, SINCE BEFORE 2008
     Route: 048
  7. ROHYPNOL [Concomitant]
     Active Substance: FLUNITRAZEPAM
     Indication: INSOMNIA
     Dosage: 1 MG, QD
     Route: 048
     Dates: start: 20141201
  8. TEGRETOL [Suspect]
     Active Substance: CARBAMAZEPINE
     Indication: PSYCHIATRIC SYMPTOM

REACTIONS (8)
  - Stevens-Johnson syndrome [Recovered/Resolved]
  - Erythema [Recovering/Resolving]
  - Malaise [Recovering/Resolving]
  - Liver disorder [Recovering/Resolving]
  - Mucous membrane disorder [Recovering/Resolving]
  - Chills [Recovering/Resolving]
  - Conjunctival hyperaemia [Recovering/Resolving]
  - Eczema [Recovering/Resolving]

NARRATIVE: CASE EVENT DATE: 20150110
